FAERS Safety Report 9004245 (Version 2)
Quarter: 2013Q1

REPORT INFORMATION
  Report Type: Spontaneous
  Country: IN (occurrence: IN)
  Receive Date: 20130109
  Receipt Date: 20130301
  Transmission Date: 20140127
  Serious: Yes (Hospitalization, Other)
  Sender: FDA-Public Use
  Company Number: IN-RANBAXY-2012RR-63910

PATIENT
  Age: 24 Year
  Sex: Male

DRUGS (9)
  1. ONDANSETRON [Suspect]
     Indication: GASTROENTERITIS
     Dosage: UNK
     Route: 048
  2. ONDANSETRON [Suspect]
     Indication: NAUSEA
     Dosage: 4 MG, SINGLE
     Route: 048
  3. OFLOXACIN [Concomitant]
     Indication: GASTROENTERITIS
     Dosage: UNK
     Route: 048
  4. ORNIDAZOLE [Concomitant]
     Indication: GASTROENTERITIS
     Dosage: UNK
     Route: 048
  5. RIFAMPICIN [Concomitant]
     Indication: PULMONARY TUBERCULOSIS
     Dosage: UNK
     Route: 065
  6. ISONIAZID [Concomitant]
     Indication: PULMONARY TUBERCULOSIS
     Dosage: UNK
     Route: 065
  7. ETHAMBUTOL [Concomitant]
     Indication: PULMONARY TUBERCULOSIS
     Dosage: UNK
     Route: 065
  8. PYRAZINAMIDE [Concomitant]
     Indication: PULMONARY TUBERCULOSIS
     Dosage: UNK
     Route: 065
  9. CO-TRIMOXAZOLE [Concomitant]
     Indication: PNEUMOCYSTIS JIROVECII PNEUMONIA
     Dosage: UNK
     Route: 065

REACTIONS (2)
  - Toxic epidermal necrolysis [Recovered/Resolved with Sequelae]
  - Self-medication [Recovered/Resolved with Sequelae]
